FAERS Safety Report 10476949 (Version 1)
Quarter: 2014Q3

REPORT INFORMATION
  Report Type: Spontaneous
  Country: DE (occurrence: DE)
  Receive Date: 20140926
  Receipt Date: 20140926
  Transmission Date: 20150326
  Serious: Yes (Other)
  Sender: FDA-Public Use
  Company Number: DE-009507513-1409DEU006383

PATIENT
  Sex: Female
  Weight: 56 kg

DRUGS (6)
  1. BUSCOPAN [Suspect]
     Active Substance: BUTYLSCOPOLAMINE BROMIDE
     Indication: LABOUR PAIN
     Dosage: UNKNOWN DOSAGE
     Route: 064
     Dates: start: 20130320, end: 20130320
  2. MIRTAZAPINE. [Suspect]
     Active Substance: MIRTAZAPINE
     Indication: DEPRESSION
     Dosage: 45 MG, QD
     Route: 064
     Dates: start: 20120603, end: 20130320
  3. FOLIC ACID. [Concomitant]
     Active Substance: FOLIC ACID
     Indication: PROPHYLAXIS OF NEURAL TUBE DEFECT
     Dosage: UNK
     Route: 064
     Dates: start: 20120615, end: 20121015
  4. DOLANTIN [Suspect]
     Active Substance: MEPERIDINE
     Indication: LABOUR PAIN
     Dosage: UNKNOWN DOSAGE
     Route: 064
     Dates: start: 20130320, end: 20130320
  5. TAVOR [Suspect]
     Active Substance: LORAZEPAM
     Indication: DEPRESSION
     Dosage: .5 MG, QD
     Route: 064
     Dates: start: 20120603, end: 20120815
  6. TREVILOR RETARD [Suspect]
     Active Substance: VENLAFAXINE HYDROCHLORIDE
     Indication: DEPRESSION
     Dosage: 75 MG, QD
     Route: 064
     Dates: start: 20120622, end: 20120815

REACTIONS (2)
  - Exposure during pregnancy [Recovered/Resolved]
  - Caesarean section [Unknown]
